FAERS Safety Report 8983467 (Version 2)
Quarter: 2013Q1

REPORT INFORMATION
  Report Type: Report from Study
  Country: US (occurrence: US)
  Receive Date: 20121224
  Receipt Date: 20130306
  Transmission Date: 20140127
  Serious: Yes (Other)
  Sender: FDA-Public Use
  Company Number: US-BRISTOL-MYERS SQUIBB COMPANY-15592611

PATIENT
  Age: 71 Year
  Sex: Female

DRUGS (2)
  1. IPILIMUMAB [Suspect]
     Indication: MALIGNANT MELANOMA
     Dosage: 1DF:214 MG?3MG/KG,LAST DOSE ON 2FEB11?NO.OF COURSES:4
     Route: 042
     Dates: start: 20101201
  2. HYDROCORTISONE [Concomitant]
     Dates: start: 20110502

REACTIONS (1)
  - Hypopituitarism [Recovered/Resolved with Sequelae]
